FAERS Safety Report 23992985 (Version 1)
Quarter: 2024Q2

REPORT INFORMATION
  Report Type: Spontaneous
  Country: US (occurrence: None)
  Receive Date: 20240620
  Receipt Date: 20240620
  Transmission Date: 20240716
  Serious: Yes (Life-Threatening, Hospitalization)
  Sender: FDA-Public Use
  Company Number: US-Harman-000059

PATIENT
  Age: 6 Year
  Sex: Female

DRUGS (7)
  1. ALLOPURINOL [Suspect]
     Active Substance: ALLOPURINOL
     Indication: Tumour lysis syndrome
  2. DEXAMETHASONE [Concomitant]
     Active Substance: DEXAMETHASONE
     Indication: Acute lymphocytic leukaemia
  3. VINCRISTINE [Concomitant]
     Active Substance: VINCRISTINE
     Indication: Acute lymphocytic leukaemia
  4. FUROSEMIDE [Concomitant]
     Active Substance: FUROSEMIDE
     Indication: Oliguria
     Dosage: (2 MG/KG AND 3 MG/KG, RESPECTIVELY)
     Route: 042
  5. RASBURICASE [Concomitant]
     Active Substance: RASBURICASE
     Indication: Blood uric acid abnormal
  6. TAMSULOSIN [Concomitant]
     Active Substance: TAMSULOSIN
     Indication: Renal lithiasis prophylaxis
  7. CHLOROTHIAZIDE [Concomitant]
     Active Substance: CHLOROTHIAZIDE
     Indication: Renal lithiasis prophylaxis
     Dosage: 500 MG EVERY 12 H ENTERALLY

REACTIONS (2)
  - Nephrolithiasis [Recovered/Resolved]
  - Acute kidney injury [Recovered/Resolved]
